FAERS Safety Report 6144909-X (Version None)
Quarter: 2009Q2

REPORT INFORMATION
  Report Type: 
  Country: None (occurrence: None)
  Receive Date: 20090406
  Receipt Date: 20090325
  Transmission Date: 20091009
  Serious: Yes (Hospitalization)
  Sender: FDA-Public Use
  Company Number: KR-MERCK-0903KOR00038

PATIENT
  Age: 45 Year
  Sex: Male

DRUGS (1)
  1. TRUSOPT [Suspect]
     Indication: OPEN ANGLE GLAUCOMA
     Route: 047

REACTIONS (1)
  - TOXIC EPIDERMAL NECROLYSIS [None]
